FAERS Safety Report 8177044-X (Version None)
Quarter: 2012Q1

REPORT INFORMATION
  Report Type: 
  Country: None (occurrence: None)
  Receive Date: 20120301
  Receipt Date: 20120223
  Transmission Date: 20120608
  Serious: Yes (Death, Hospitalization)
  Sender: FDA-Public Use
  Company Number: US-GLAXOSMITHKLINE-A0872783A

PATIENT
  Age: 69 Year
  Sex: Female
  Weight: 59.1 kg

DRUGS (8)
  1. LABETALOL HCL [Concomitant]
  2. LEVOXYL [Concomitant]
  3. NORVASC [Concomitant]
  4. AVANDIA [Suspect]
     Indication: DIABETES MELLITUS
     Dosage: 4MG PER DAY
     Route: 048
     Dates: end: 20070611
  5. RENAGEL [Concomitant]
  6. LIPITOR [Concomitant]
  7. GLYBURIDE [Concomitant]
  8. CLONIDINE [Concomitant]

REACTIONS (2)
  - DEATH [None]
  - CARDIAC FAILURE CONGESTIVE [None]
